FAERS Safety Report 23677691 (Version 1)
Quarter: 2024Q1

REPORT INFORMATION
  Report Type: Spontaneous
  Country: US (occurrence: None)
  Receive Date: 20240326
  Receipt Date: 20240326
  Transmission Date: 20240410
  Serious: Yes (Hospitalization)
  Sender: FDA-Public Use
  Company Number: None

PATIENT
  Age: 69 Year
  Sex: Female
  Weight: 90 kg

DRUGS (16)
  1. KEVZARA [Suspect]
     Active Substance: SARILUMAB
     Indication: Rheumatoid arthritis
     Dosage: OTHER FREQUENCY : Q14D;?
     Route: 058
     Dates: start: 20240126, end: 20240301
  2. ATORVASTATIN [Concomitant]
     Active Substance: ATORVASTATIN
  3. BIOTIN [Concomitant]
     Active Substance: BIOTIN
  4. CYCLOBENZAPRINE [Concomitant]
     Active Substance: CYCLOBENZAPRINE
  5. HYDROXYCHLOROQUINE [Concomitant]
     Active Substance: HYDROXYCHLOROQUINE
  6. LEVOTHYROXINE [Concomitant]
     Active Substance: LEVOTHYROXINE\LEVOTHYROXINE SODIUM
  7. MELOXICAM [Concomitant]
     Active Substance: MELOXICAM
  8. METOPROLOL SUCCINATE [Concomitant]
     Active Substance: METOPROLOL SUCCINATE
  9. NORCO [Concomitant]
     Active Substance: ACETAMINOPHEN\HYDROCODONE BITARTRATE
  10. PREDNISONE [Concomitant]
     Active Substance: PREDNISONE
  11. SYNJARDY [Concomitant]
     Active Substance: EMPAGLIFLOZIN\METFORMIN HYDROCHLORIDE
  12. HERBALS\TURMERIC [Concomitant]
     Active Substance: HERBALS\TURMERIC
  13. VITAMIN B12 [Concomitant]
     Active Substance: CYANOCOBALAMIN
  14. VITAMIN D [Concomitant]
     Active Substance: VITAMIN D NOS
  15. ZINC [Concomitant]
     Active Substance: PYRITHIONE ZINC\ZINC\ZINC CHLORIDE
  16. BEETROOT [Concomitant]

REACTIONS (2)
  - Bacterial infection [None]
  - Post procedural infection [None]

NARRATIVE: CASE EVENT DATE: 20240301
